FAERS Safety Report 4708228-8 (Version None)
Quarter: 2005Q3

REPORT INFORMATION
  Report Type: 
  Country: None (occurrence: None)
  Receive Date: 20050705
  Receipt Date: 20050705
  Transmission Date: 20060218
  Serious: Yes (Other)
  Sender: FDA-Public Use
  Company Number: None

PATIENT
  Age: 55 Year
  Sex: Female
  Weight: 52.6173 kg

DRUGS (2)
  1. FENTANYL [Suspect]
     Indication: CHEMOTHERAPY
     Dosage: APPLY WITH 72 HRS
     Dates: start: 20050303, end: 20050317
  2. FENTANYL [Suspect]
     Indication: LUNG NEOPLASM MALIGNANT
     Dosage: APPLY WITH 72 HRS
     Dates: start: 20050303, end: 20050317

REACTIONS (1)
  - RASH PRURITIC [None]
